FAERS Safety Report 9720705 (Version 2)
Quarter: 2013Q4

REPORT INFORMATION
  Report Type: Report from Study
  Country: NL (occurrence: NL)
  Receive Date: 20131129
  Receipt Date: 20131219
  Transmission Date: 20140711
  Serious: Yes (Death, Other)
  Sender: FDA-Public Use
  Company Number: PHHY2013NL137329

PATIENT
  Sex: Male

DRUGS (3)
  1. ZOMETA [Suspect]
     Indication: PROSTATE CANCER
     Dosage: 4 MG/100ML, 1X PER 6 WEEKS
     Route: 042
  2. ZOMETA [Suspect]
     Dosage: 4 MG/100ML, 1X PER 6 WEEKS
     Route: 042
     Dates: start: 20090622
  3. ZOMETA [Suspect]
     Dosage: 4 MG/100ML, 1X PER 6 WEEKS
     Route: 042
     Dates: start: 20131018

REACTIONS (3)
  - Myocardial infarction [Fatal]
  - Prostate cancer [Fatal]
  - General physical health deterioration [Unknown]
